FAERS Safety Report 7458746-7 (Version None)
Quarter: 2011Q2

REPORT INFORMATION
  Report Type: 
  Country: None (occurrence: None)
  Receive Date: 20110504
  Receipt Date: 20110428
  Transmission Date: 20111010
  Serious: Yes (Hospitalization, Other)
  Sender: FDA-Public Use
  Company Number: PHHY2011GB35610

PATIENT
  Age: 73 Year
  Sex: Female

DRUGS (5)
  1. PREDNISOLONE [Concomitant]
     Indication: RHEUMATOID ARTHRITIS
     Dosage: UNK
  2. FERROUS FUMARATE [Concomitant]
     Indication: ANAEMIA
     Dosage: 210 MG, TID
     Route: 048
  3. CALCICHEW D3 [Concomitant]
     Indication: OSTEOPENIA
     Dosage: 1 DF, BID
     Route: 048
  4. LANSOPRAZOLE [Concomitant]
     Indication: GASTROOESOPHAGEAL REFLUX PROPHYLAXIS
     Dosage: 15 MG, QD
     Route: 048
  5. LEFLUNOMIDE [Suspect]
     Indication: RHEUMATOID ARTHRITIS
     Dosage: 20 MG, QD
     Route: 048

REACTIONS (5)
  - DYSPNOEA [None]
  - SPUTUM DISCOLOURED [None]
  - COUGH [None]
  - PNEUMONIA [None]
  - BRONCHIECTASIS [None]
